FAERS Safety Report 9677931 (Version 2)
Quarter: 2013Q4

REPORT INFORMATION
  Report Type: Spontaneous
  Country: NO (occurrence: NO)
  Receive Date: 20131108
  Receipt Date: 20131108
  Transmission Date: 20140711
  Serious: Yes (Hospitalization, Disabling, Other)
  Sender: FDA-Public Use
  Company Number: NO-009507513-1311NOR002439

PATIENT
  Age: 26 Year
  Sex: Female

DRUGS (2)
  1. NEXPLANON [Suspect]
     Indication: CONTRACEPTION
     Dosage: 1 IMPLANT
     Route: 059
     Dates: start: 20111219, end: 20130627
  2. IMPLANON [Suspect]
     Dosage: UNK
     Route: 059
     Dates: start: 20090327, end: 20111219

REACTIONS (33)
  - Adnexa uteri pain [Recovered/Resolved with Sequelae]
  - Adnexa uteri pain [Recovered/Resolved with Sequelae]
  - Hormone level abnormal [Recovered/Resolved]
  - Menorrhagia [Recovered/Resolved]
  - Aphasia [Recovered/Resolved]
  - Abasia [Recovered/Resolved]
  - Uterine pain [Recovered/Resolved with Sequelae]
  - Uterine pain [Recovered/Resolved with Sequelae]
  - Surgery [Unknown]
  - Surgery [Unknown]
  - Surgery [Unknown]
  - Back pain [Recovered/Resolved with Sequelae]
  - Pelvic pain [Recovered/Resolved with Sequelae]
  - Menstruation normal [Unknown]
  - Self esteem decreased [Unknown]
  - Dyspareunia [Unknown]
  - Burnout syndrome [Unknown]
  - Device difficult to use [Recovered/Resolved]
  - Device deployment issue [Recovered/Resolved]
  - Device dislocation [Recovered/Resolved]
  - Post procedural complication [Unknown]
  - Complication of device removal [Unknown]
  - Medical device complication [Recovered/Resolved]
  - Neck pain [Recovered/Resolved with Sequelae]
  - Nausea [Unknown]
  - Dizziness [Unknown]
  - Pain in extremity [Recovered/Resolved]
  - Menstruation irregular [Recovered/Resolved]
  - Medical device complication [Unknown]
  - Fatigue [Unknown]
  - Drug ineffective [Unknown]
  - Uterine pain [Recovered/Resolved with Sequelae]
  - Pelvic pain [Recovered/Resolved with Sequelae]
